FAERS Safety Report 9538588 (Version 1)
Quarter: 2013Q3

REPORT INFORMATION
  Report Type: Report from Study
  Country: DE (occurrence: DE)
  Receive Date: 20130920
  Receipt Date: 20130920
  Transmission Date: 20140515
  Serious: Yes (Death, Congenital Anomaly)
  Sender: FDA-Public Use
  Company Number: DE-UCBSA-098374

PATIENT
  Sex: 0

DRUGS (2)
  1. LEVETIRACETAM [Suspect]
     Indication: EPILEPSY
     Dosage: DAILY DOSE: 1000
     Route: 064
  2. LAMOTRIGINE [Suspect]
     Indication: EPILEPSY
     Route: 064

REACTIONS (3)
  - Foetal death [Fatal]
  - Congenital pigmentation disorder [Unknown]
  - Foetal exposure during pregnancy [Recovered/Resolved]
